FAERS Safety Report 8607801-4 (Version None)
Quarter: 2012Q3

REPORT INFORMATION
  Report Type: 
  Country: None (occurrence: None)
  Receive Date: 20120821
  Receipt Date: 20120816
  Transmission Date: 20120928
  Serious: Yes (Death, Hospitalization, Other)
  Sender: FDA-Public Use
  Company Number: PHHY2012VE071187

PATIENT
  Sex: Female

DRUGS (7)
  1. ZOLEDRONOC ACID [Suspect]
     Dosage: 5 MG/YEAR
     Route: 042
     Dates: start: 20100819
  2. METICORTEN [Concomitant]
     Indication: OSTEOARTHRITIS
     Dosage: UNK UKN, UNK
  3. KETOROLAC TROMETHAMINE [Concomitant]
     Indication: PAIN
     Dosage: UNK UKN, PRN
     Route: 060
  4. VITAMIN TAB [Concomitant]
     Route: 048
  5. ZOLEDRONOC ACID [Suspect]
     Dosage: 5 MG/YEAR
     Route: 042
     Dates: start: 20120610
  6. CALCIUM [Concomitant]
     Dosage: UNK UKN, UNK
     Route: 048
  7. ASPIRIN [Concomitant]
     Route: 048

REACTIONS (6)
  - ANIMAL BITE [None]
  - RESPIRATORY FAILURE [None]
  - WOUND INFECTION [None]
  - HYPOPHAGIA [None]
  - PAIN [None]
  - VOMITING [None]
